FAERS Safety Report 4717757-2 (Version None)
Quarter: 2005Q3

REPORT INFORMATION
  Report Type: 
  Country: None (occurrence: None)
  Receive Date: 20050715
  Receipt Date: 20050325
  Transmission Date: 20060218
  Serious: Yes (Other)
  Sender: FDA-Public Use
  Company Number: 2005-00617

PATIENT
  Age: 53 Year
  Sex: Female

DRUGS (4)
  1. INTEGRILIN [Suspect]
     Indication: MYOCARDIAL INFARCTION
     Dosage: SEE IMAGE
     Dates: start: 20050325, end: 20050325
  2. INTEGRILIN [Suspect]
     Indication: MYOCARDIAL INFARCTION
     Dosage: SEE IMAGE
     Dates: start: 20050325
  3. PLAVIX [Concomitant]
  4. HEPARIN [Concomitant]

REACTIONS (2)
  - PETECHIAE [None]
  - THROMBOCYTOPENIA [None]
